FAERS Safety Report 6910353-8 (Version None)
Quarter: 2010Q3

REPORT INFORMATION
  Report Type: 
  Country: None (occurrence: None)
  Receive Date: 20100806
  Receipt Date: 20100727
  Transmission Date: 20110219
  Serious: Yes (Other)
  Sender: FDA-Public Use
  Company Number: BR-PFIZER INC-2010080932

PATIENT
  Age: 70 Year
  Sex: Male

DRUGS (7)
  1. VIAGRA [Suspect]
     Dosage: 50 MG, UNK
     Route: 048
  2. ENALAPRIL MALEATE [Concomitant]
     Dosage: UNK
  3. HIDANTAL [Concomitant]
     Dosage: UNK
  4. LIORESAL ^NOVARTIS^ [Concomitant]
     Dosage: 5 MG, A DAY
  5. MACRODANTINA [Concomitant]
     Dosage: 100 MG, 2X/DAY
  6. MIRTAZAPINE [Concomitant]
     Dosage: 15 MG, A DAY
  7. LIPITOR [Concomitant]
     Dosage: 10 MG A DAY

REACTIONS (6)
  - CEREBROVASCULAR ACCIDENT [None]
  - DEPRESSION [None]
  - HAEMORRHAGE [None]
  - HEMIPLEGIA [None]
  - THROMBOSIS [None]
  - URINARY TRACT INFECTION [None]
